FAERS Safety Report 9293477 (Version 2)
Quarter: 2014Q1

REPORT INFORMATION
  Report Type: Spontaneous
  Country: US (occurrence: US)
  Receive Date: 20130516
  Receipt Date: 20140303
  Transmission Date: 20141002
  Serious: Yes (Death, Hospitalization, Disabling, Other)
  Sender: FDA-Public Use
  Company Number: US-GLAXOSMITHKLINE-A1023548A

PATIENT
  Age: 81 Year
  Sex: Male
  Weight: 71.8 kg

DRUGS (11)
  1. PROMACTA [Suspect]
     Indication: IMMUNE THROMBOCYTOPENIC PURPURA
     Dosage: 25MG PER DAY
     Route: 048
     Dates: start: 201304, end: 20130507
  2. COUMADIN [Concomitant]
  3. KEPPRA [Concomitant]
  4. METOPROLOL [Concomitant]
  5. VITAMIN B COMPLEX [Concomitant]
  6. LEVOFLOXACIN [Concomitant]
  7. LECITHIN [Concomitant]
  8. MULTIVITAMIN [Concomitant]
  9. GLYBURIDE [Concomitant]
  10. PREDNISONE [Concomitant]
  11. ALLEGRA [Concomitant]

REACTIONS (13)
  - Death [Fatal]
  - Sepsis [Unknown]
  - Cardiac failure congestive [Unknown]
  - Bronchitis [Unknown]
  - Blood pH decreased [Unknown]
  - White blood cell count increased [Unknown]
  - Dyspnoea [Unknown]
  - Cardiomegaly [Unknown]
  - Pleural effusion [Unknown]
  - Pulmonary mass [Unknown]
  - Condition aggravated [Unknown]
  - Atelectasis [Unknown]
  - Lymphadenopathy [Unknown]
